FAERS Safety Report 11099240 (Version 1)
Quarter: 2015Q2

REPORT INFORMATION
  Report Type: Spontaneous
  Country: TN (occurrence: None)
  Receive Date: 20150506
  Receipt Date: 20150506
  Transmission Date: 20150821
  Serious: Yes (Hospitalization)
  Sender: FDA-Public Use
  Company Number: 2015PL000055

PATIENT
  Age: 54 Year
  Sex: Male

DRUGS (3)
  1. INDOMETACIN [Concomitant]
     Active Substance: INDOMETHACIN
  2. ALLOPURINOL (ALLOPURINOL) TABLET [Suspect]
     Active Substance: ALLOPURINOL
     Indication: HYPERURICAEMIA
  3. METHYLDOPA. [Concomitant]
     Active Substance: METHYLDOPA

REACTIONS (1)
  - Drug reaction with eosinophilia and systemic symptoms [None]
